FAERS Safety Report 6633833-1 (Version None)
Quarter: 2010Q1

REPORT INFORMATION
  Report Type: 
  Country: None (occurrence: None)
  Receive Date: 20100315
  Receipt Date: 20100308
  Transmission Date: 20100710
  Serious: Yes (Hospitalization)
  Sender: FDA-Public Use
  Company Number: US-ELI_LILLY_AND_COMPANY-US201003002052

PATIENT
  Sex: Male

DRUGS (8)
  1. GEMCITABINE HCL [Suspect]
     Indication: PANCREATIC CARCINOMA METASTATIC
     Dosage: 1000 MG/M2, UNKNOWN
     Route: 065
     Dates: start: 20100111
  2. COMPAZINE [Concomitant]
     Indication: VOMITING
     Route: 048
     Dates: start: 20091231
  3. LORAZEPAM [Concomitant]
     Indication: PAIN
     Dosage: 1 MG, EVERY 8 HRS
     Route: 048
     Dates: start: 20091231
  4. ONDANSETRON [Concomitant]
     Indication: VOMITING
     Dosage: 8 MG, EVERY 8 HRS
     Route: 048
     Dates: start: 20091231
  5. PANCRELIPASE [Concomitant]
     Indication: PROPHYLAXIS
     Route: 048
     Dates: start: 20091231
  6. PRILOSEC [Concomitant]
     Indication: GASTROOESOPHAGEAL REFLUX DISEASE
     Route: 048
  7. REGLAN [Concomitant]
     Indication: NAUSEA
     Dosage: 10 MG, EVERY 8 HRS
     Route: 048
     Dates: start: 20091231
  8. OXYCONTIN [Concomitant]
     Indication: PAIN
     Dosage: 10 MG, EVERY 8 HRS
     Route: 048
     Dates: start: 20100107

REACTIONS (2)
  - DEEP VEIN THROMBOSIS [None]
  - DUODENAL OBSTRUCTION [None]
